FAERS Safety Report 9218816 (Version 1)
Quarter: 2013Q1

REPORT INFORMATION
  Report Type: Spontaneous
  Country: US (occurrence: None)
  Receive Date: 20120827
  Receipt Date: 20120827
  Transmission Date: 20140127
  Serious: No
  Sender: FDA-Public Use
  Company Number: 354215

PATIENT
  Sex: Male

DRUGS (2)
  1. VICTOZA ( LIRAGLUTIDE) SOLUTION FOR INJECTION [Suspect]
     Indication: PRODUCT USED FOR UNKNOWN INDICATION
     Route: 058
  2. METFORMIN (METFORMIN) [Suspect]
     Route: 058

REACTIONS (4)
  - Abdominal pain [None]
  - Abdominal discomfort [None]
  - Abdominal distension [None]
  - Decreased appetite [None]
